FAERS Safety Report 12290534 (Version 2)
Quarter: 2016Q2

REPORT INFORMATION
  Report Type: Spontaneous
  Country: JP (occurrence: JP)
  Receive Date: 20160421
  Receipt Date: 20160520
  Transmission Date: 20160815
  Serious: Yes (Hospitalization)
  Sender: FDA-Public Use
  Company Number: JP-PFIZER INC-2016219289

PATIENT
  Age: 12 Year
  Sex: Male
  Weight: 21 kg

DRUGS (3)
  1. GENOTROPIN TC [Suspect]
     Active Substance: SOMATROPIN
     Indication: DWARFISM
     Dosage: 1.6 MG, 1X/DAY
     Route: 058
     Dates: start: 20100706
  2. GENOTROPIN TC [Suspect]
     Active Substance: SOMATROPIN
     Dosage: UNK
     Route: 058
     Dates: start: 20160325, end: 20160329
  3. GENOTROPIN TC [Suspect]
     Active Substance: SOMATROPIN
     Dosage: 8 MG, DAILY
     Route: 058
     Dates: start: 20151229, end: 20160321

REACTIONS (1)
  - Bone cyst [Unknown]

NARRATIVE: CASE EVENT DATE: 201603
